FAERS Safety Report 4387561-6 (Version None)
Quarter: 2004Q2

REPORT INFORMATION
  Report Type: 
  Country: None (occurrence: None)
  Receive Date: 20040630
  Receipt Date: 20040507
  Transmission Date: 20050107
  Serious: No
  Sender: FDA-Public Use
  Company Number: US-GLAXOSMITHKLINE-A0510004A

PATIENT
  Age: 50 Year
  Sex: Female

DRUGS (1)
  1. ADVAIR HFA [Suspect]

REACTIONS (1)
  - DRY MOUTH [None]
